FAERS Safety Report 5269735-5 (Version None)
Quarter: 2007Q1

REPORT INFORMATION
  Report Type: 
  Country: None (occurrence: None)
  Receive Date: 20070320
  Receipt Date: 20070308
  Transmission Date: 20070707
  Serious: Yes (Death)
  Sender: FDA-Public Use
  Company Number: SE-ROCHE-483791

PATIENT
  Age: 13 Month
  Sex: Female

DRUGS (5)
  1. CYMEVENE [Suspect]
     Indication: CYTOMEGALOVIRUS GASTROINTESTINAL INFECTION
     Dosage: FORM REPORTED AS POWDER FOR SOLUTION FOR INFUSION.  DOSAGE REGIMEN: DAILY. LAST DOSE OF GANCICLOVIR+
     Route: 042
     Dates: start: 20050806, end: 20050808
  2. MABTHERA [Concomitant]
  3. NEUPOGEN [Concomitant]
     Dosage: TRADE NAME REPORTED AS NEUPOGEN (AMGEN).
  4. NOVOSEVEN [Concomitant]
  5. NEXIUM [Concomitant]

REACTIONS (2)
  - DRUG THERAPEUTIC INCOMPATIBILITY [None]
  - HYPOTENSION [None]
